FAERS Safety Report 4947498-8 (Version None)
Quarter: 2006Q1

REPORT INFORMATION
  Report Type: 
  Country: None (occurrence: None)
  Receive Date: 20060314
  Receipt Date: 20060222
  Transmission Date: 20060701
  Serious: Yes (Other)
  Sender: FDA-Public Use
  Company Number: EG200602004700

PATIENT
  Age: 35 Year
  Sex: Male

DRUGS (4)
  1. TERIPARATIDE (TERIPARATIDE) PEN, DISPOSABLE [Suspect]
     Indication: OSTEOPOROSIS
     Dosage: 20 UG, DAILY (1D), SUBCUTANEOUS
     Route: 058
     Dates: start: 20060204, end: 20060218
  2. FORTEO PEN (FORTEO PEN) PEN, DISPOSABLE [Concomitant]
  3. FOSAMAX [Concomitant]
  4. BLOOD TRANSFUSION, AUXILIARY PRODUCTS [Concomitant]

REACTIONS (5)
  - CHILLS [None]
  - OEDEMA PERIPHERAL [None]
  - PALPITATIONS [None]
  - POST PROCEDURAL COMPLICATION [None]
  - PYREXIA [None]
